FAERS Safety Report 24339446 (Version 1)
Quarter: 2024Q3

REPORT INFORMATION
  Report Type: Spontaneous
  Country: JP (occurrence: JP)
  Receive Date: 20240919
  Receipt Date: 20240919
  Transmission Date: 20241016
  Serious: Yes (Other)
  Sender: JOHNSON AND JOHNSON
  Company Number: JP-MTPC-MTPC2024-0019247

PATIENT
  Age: 75 Year
  Sex: Male

DRUGS (1)
  1. REMICADE [Suspect]
     Active Substance: INFLIXIMAB
     Indication: Product used for unknown indication
     Route: 041

REACTIONS (8)
  - Myelodysplastic syndrome [Unknown]
  - Small intestinal perforation [Unknown]
  - DNA antibody positive [Unknown]
  - Trisomy 8 [Unknown]
  - Ileal ulcer [Unknown]
  - Pyrexia [Recovered/Resolved]
  - Pyrexia [Unknown]
  - Diarrhoea [Unknown]
